FAERS Safety Report 4665596-3 (Version None)
Quarter: 2005Q2

REPORT INFORMATION
  Report Type: 
  Country: None (occurrence: None)
  Receive Date: 20050519
  Receipt Date: 20050510
  Transmission Date: 20051028
  Serious: Yes (Other)
  Sender: FDA-Public Use
  Company Number: US-JNJFOC-20050502975

PATIENT
  Age: 41 Year
  Sex: Female

DRUGS (7)
  1. TOPAMAX [Suspect]
  2. TOPAMAX [Suspect]
     Indication: DRUG USE FOR UNKNOWN INDICATION
  3. PAXIL [Concomitant]
     Indication: DEPRESSION
  4. SEROQUEL [Concomitant]
     Indication: DEPRESSION
  5. BETASERON [Concomitant]
  6. BETASERON [Concomitant]
  7. BETASERON [Concomitant]
     Indication: MULTIPLE SCLEROSIS

REACTIONS (4)
  - BLINDNESS [None]
  - MULTIPLE SCLEROSIS [None]
  - OPTIC NEURITIS [None]
  - SUICIDAL IDEATION [None]
